FAERS Safety Report 7677179-1 (Version None)
Quarter: 2011Q3

REPORT INFORMATION
  Report Type: 
  Country: None (occurrence: None)
  Receive Date: 20110811
  Receipt Date: 20110728
  Transmission Date: 20111222
  Serious: Yes (Hospitalization, Other)
  Sender: FDA-Public Use
  Company Number: US-ELI_LILLY_AND_COMPANY-US201108001140

PATIENT
  Sex: Female

DRUGS (12)
  1. CYMBALTA [Concomitant]
  2. LIPITOR [Concomitant]
  3. FORTEO [Suspect]
     Indication: OSTEOPOROSIS
     Dosage: 20 UG, QD
     Dates: start: 20110531, end: 20110719
  4. COPAXONE [Concomitant]
     Indication: MULTIPLE SCLEROSIS
     Dosage: 1 DF, UNK
  5. ASPIRIN [Concomitant]
     Dosage: UNK, QD
  6. VITAMIN D [Concomitant]
     Dosage: 50000 IU, UNK
  7. MULTI-VITAMINS [Concomitant]
  8. LEVOTHYROXINE SODIUM [Concomitant]
     Indication: THYROID DISORDER
     Dosage: UNK UNK, QD
  9. LYRICA [Concomitant]
     Dosage: UNK, BID
  10. FORTEO [Suspect]
     Dosage: 20 UG, QD
  11. XANAX [Concomitant]
     Indication: ANXIETY
  12. POTASSIUM [Concomitant]

REACTIONS (16)
  - DEHYDRATION [None]
  - DECREASED APPETITE [None]
  - NAUSEA [None]
  - DYSPNOEA [None]
  - MUSCULAR WEAKNESS [None]
  - MEMORY IMPAIRMENT [None]
  - ASTHENIA [None]
  - LOSS OF CONSCIOUSNESS [None]
  - FALL [None]
  - GAIT DISTURBANCE [None]
  - VISUAL IMPAIRMENT [None]
  - SLEEP DISORDER [None]
  - FATIGUE [None]
  - MALAISE [None]
  - JAW DISORDER [None]
  - MULTIPLE SCLEROSIS [None]
